FAERS Safety Report 4417590-5 (Version None)
Quarter: 2004Q3

REPORT INFORMATION
  Report Type: 
  Country: None (occurrence: None)
  Receive Date: 20040803
  Receipt Date: 20040720
  Transmission Date: 20050211
  Serious: Yes (Death)
  Sender: FDA-Public Use
  Company Number: 2004-NL-00104NL

PATIENT
  Age: 87 Year
  Sex: Male

DRUGS (13)
  1. MOVICOX (MELOXICAM) (TA) [Suspect]
     Indication: PAIN
     Dosage: 15 MG(15 MG, 1 TIMES PER 1 DAYS 15 MG); PO
     Route: 048
     Dates: start: 20040202, end: 20040515
  2. ACETYLSALICYLIC ACID SRT [Suspect]
     Dosage: 80 MG (80 MG, 1 TIMES PER 1 DAYS); PO
     Route: 048
     Dates: start: 20011128, end: 20040515
  3. AMARYL (GLIMEPIRIDE) (TA) [Concomitant]
  4. METFORMINI HCL (METFORMIN HYDROCHLORIDE)(TA) [Concomitant]
  5. CAPTORILUM (CAPTOPRIL) (TA) [Concomitant]
  6. HYDROCHLOROTHIAZIDUM (HYDROCHLOROTHIAZIDE) (TA) [Concomitant]
  7. CASODEX [Suspect]
  8. PARACETAMOLUM (PARACETAMOL )(TA) [Concomitant]
  9. SIRUPUS LACTULOSI (LACTULOSE) [Concomitant]
  10. AMOXI/AC CLAVULANICUM (AMOXI-CLAVULANICO) [Concomitant]
  11. ANDROCUR (CYPROTERONE ACETATE) (TA) [Concomitant]
  12. DETRUSITOL (TOLTERODINE L-TARTRATE) (KA) [Concomitant]
  13. IMPORTAL (LACTITOL ) (PL) [Concomitant]

REACTIONS (3)
  - DRUG LEVEL INCREASED [None]
  - GASTRIC ULCER HAEMORRHAGE [None]
  - HAEMORRHAGE [None]
